FAERS Safety Report 9659446 (Version 1)
Quarter: 2013Q4

REPORT INFORMATION
  Report Type: Spontaneous
  Country: PT (occurrence: PT)
  Receive Date: 20131031
  Receipt Date: 20131031
  Transmission Date: 20140711
  Serious: Yes (Hospitalization)
  Sender: FDA-Public Use
  Company Number: PT-SA-2013SA109417

PATIENT
  Age: 31 Year
  Sex: Female

DRUGS (4)
  1. DEFLAZACORT [Suspect]
     Indication: EYELID OEDEMA
     Route: 065
  2. HYDROCORTISONE [Suspect]
     Indication: EYELID OEDEMA
     Route: 061
  3. CLARITHROMYCIN [Concomitant]
  4. HYDROCORTISONE [Concomitant]
     Route: 042

REACTIONS (5)
  - Hypersensitivity [Unknown]
  - Rash generalised [Unknown]
  - Rash erythematous [Unknown]
  - Urticaria [Unknown]
  - Acute generalised exanthematous pustulosis [Unknown]
